FAERS Safety Report 24453441 (Version 2)
Quarter: 2024Q4

REPORT INFORMATION
  Report Type: Report from Study
  Country: ZA (occurrence: ZA)
  Receive Date: 20241017
  Receipt Date: 20241018
  Transmission Date: 20250114
  Serious: No
  Sender: ROCHE
  Company Number: ZA-ROCHE-3341528

PATIENT
  Sex: Female

DRUGS (3)
  1. RITUXIMAB [Suspect]
     Active Substance: RITUXIMAB
     Indication: Rheumatoid arthritis
     Dosage: REPEATED 6-MONTHLY?FIRST INFUSION ON 01/JUN/2023 AND SECOND ONE ON 28/JUN/202, LAST INFUSION 06/OCT/
     Route: 041
     Dates: start: 20220922
  2. MABTHERA [Suspect]
     Active Substance: RITUXIMAB
     Indication: Rheumatoid arthritis
     Dosage: REPEATED 6-MONTHLY
     Route: 041
     Dates: start: 20210528
  3. MABTHERA [Suspect]
     Active Substance: RITUXIMAB
     Dosage: REPEATED 6-MONTHLY?LAST DOSE WAS GIVEN ON 09/JUN/2023 AND 28/JUN/2023
     Route: 041
     Dates: start: 202304

REACTIONS (3)
  - Blood creatinine increased [Unknown]
  - Muscle spasms [Unknown]
  - White blood cell count decreased [Unknown]

NARRATIVE: CASE EVENT DATE: 20230419
